FAERS Safety Report 17412362 (Version 3)
Quarter: 2020Q2

REPORT INFORMATION
  Report Type: Spontaneous
  Country: US (occurrence: US)
  Receive Date: 20200213
  Receipt Date: 20200529
  Transmission Date: 20200713
  Serious: No
  Sender: FDA-Public Use
  Company Number: US-GILEAD-2020-0450641

PATIENT
  Age: 51 Year
  Sex: Male

DRUGS (28)
  1. PROVENTIL HFA [Concomitant]
     Active Substance: ALBUTEROL SULFATE
  2. ASPIRIN 81 [Concomitant]
     Active Substance: ASPIRIN
  3. NITROSTAT [Concomitant]
     Active Substance: NITROGLYCERIN
  4. DOXYCYCLINE HYCLATE. [Concomitant]
     Active Substance: DOXYCYCLINE HYCLATE
  5. SIMVASTATIN. [Concomitant]
     Active Substance: SIMVASTATIN
  6. PREVACID [Concomitant]
     Active Substance: LANSOPRAZOLE
  7. PENICILLIN VK [Concomitant]
     Active Substance: PENICILLIN V POTASSIUM
  8. NICOTINE POLACRILEX [Concomitant]
     Active Substance: NICOTINE
  9. TOPROL XL [Concomitant]
     Active Substance: METOPROLOL SUCCINATE
  10. PREDNISONE. [Concomitant]
     Active Substance: PREDNISONE
  11. LEVOFLOXACIN. [Concomitant]
     Active Substance: LEVOFLOXACIN
  12. BIKTARVY [Concomitant]
     Active Substance: BICTEGRAVIR SODIUM\EMTRICITABINE\TENOFOVIR ALAFENAMIDE FUMARATE
     Dosage: 1 DOSAGE FORM, QD
     Route: 048
  13. CHOLECALCIFEROL [Concomitant]
     Active Substance: CHOLECALCIFEROL
  14. NITROGLYCERIN. [Concomitant]
     Active Substance: NITROGLYCERIN
  15. ASMANEX [Concomitant]
     Active Substance: MOMETASONE FUROATE
  16. BENZONATATE. [Concomitant]
     Active Substance: BENZONATATE
  17. ATRIPLA [Suspect]
     Active Substance: EFAVIRENZ\EMTRICITABINE\TENOFOVIR DISOPROXIL FUMARATE
     Indication: HIV INFECTION
     Dosage: UNK
     Route: 048
     Dates: start: 20101215, end: 20181231
  18. BREO ELLIPTA [Concomitant]
     Active Substance: FLUTICASONE FUROATE\VILANTEROL TRIFENATATE
  19. AMOXICILLIN. [Concomitant]
     Active Substance: AMOXICILLIN
  20. ADVAIR HFA [Concomitant]
     Active Substance: FLUTICASONE PROPIONATE\SALMETEROL XINAFOATE
  21. OSCAL [Concomitant]
     Active Substance: CALCIUM CARBONATE
  22. TEMOVATE [Concomitant]
     Active Substance: CLOBETASOL PROPIONATE
  23. ARISTOCORT [TRIAMCINOLONE ACETONIDE] [Concomitant]
  24. CARVEDILOL. [Concomitant]
     Active Substance: CARVEDILOL
  25. PLAVIX [Concomitant]
     Active Substance: CLOPIDOGREL BISULFATE
  26. DIAZEPAM. [Concomitant]
     Active Substance: DIAZEPAM
  27. SPIRIVA [Concomitant]
     Active Substance: TIOTROPIUM BROMIDE MONOHYDRATE
  28. IMIQUIMOD. [Concomitant]
     Active Substance: IMIQUIMOD

REACTIONS (7)
  - Economic problem [Unknown]
  - Emotional distress [Unknown]
  - Pain [Unknown]
  - Bone density decreased [Unknown]
  - Osteopenia [Not Recovered/Not Resolved]
  - Anxiety [Unknown]
  - Anhedonia [Unknown]

NARRATIVE: CASE EVENT DATE: 20190211
